FAERS Safety Report 6840205-3 (Version None)
Quarter: 2010Q3

REPORT INFORMATION
  Report Type: 
  Country: None (occurrence: None)
  Receive Date: 20100714
  Receipt Date: 20100628
  Transmission Date: 20110219
  Serious: No
  Sender: FDA-Public Use
  Company Number: PHHY2010JP18312

PATIENT
  Age: 68 Year
  Sex: Male

DRUGS (5)
  1. DIOVAN [Suspect]
     Indication: HYPERTENSION
     Dosage: 40 MG, QD
     Route: 048
     Dates: start: 20021001
  2. KREMEZIN [Concomitant]
     Indication: HYPERTENSION
  3. CALCIUM POLYSTYRENE SULFONATE [Concomitant]
     Indication: HYPERTENSION
  4. CRESTOR [Concomitant]
     Dosage: 2.5 MG
     Route: 048
  5. ALLOPURINOL [Concomitant]
     Dosage: 100 MG
     Route: 048

REACTIONS (1)
  - BLOOD POTASSIUM INCREASED [None]
